FAERS Safety Report 7425931-X (Version None)
Quarter: 2011Q2

REPORT INFORMATION
  Report Type: 
  Country: None (occurrence: None)
  Receive Date: 20110420
  Receipt Date: 20110411
  Transmission Date: 20111010
  Serious: Yes (Other)
  Sender: FDA-Public Use
  Company Number: ES-ROCHE-770621

PATIENT

DRUGS (2)
  1. CAPECITABINE [Suspect]
     Indication: GASTRIC CANCER
     Dosage: FOR 14 DAYS.
     Route: 065
  2. CISPLATIN [Suspect]
     Indication: GASTRIC CANCER
     Route: 042

REACTIONS (9)
  - DIARRHOEA [None]
  - NEPHROPATHY TOXIC [None]
  - MUCOSAL INFLAMMATION [None]
  - VOMITING [None]
  - NEUTROPENIA [None]
  - ALOPECIA [None]
  - PALMAR-PLANTAR ERYTHRODYSAESTHESIA SYNDROME [None]
  - ANAEMIA [None]
  - NEUROPATHY PERIPHERAL [None]
